FAERS Safety Report 7311739-2 (Version None)
Quarter: 2011Q1

REPORT INFORMATION
  Report Type: 
  Country: None (occurrence: None)
  Receive Date: 20110224
  Receipt Date: 20110221
  Transmission Date: 20110831
  Serious: Yes (Hospitalization)
  Sender: FDA-Public Use
  Company Number: GB-MERCK-1008GBR00094

PATIENT
  Age: 81 Year
  Sex: Male

DRUGS (15)
  1. ATENOLOL [Concomitant]
     Route: 048
  2. CLOPIDOGREL BISULFATE [Concomitant]
     Route: 048
     Dates: start: 20100214
  3. QUININE SULFATE [Concomitant]
     Route: 048
     Dates: start: 20100225
  4. ZOCOR [Suspect]
     Route: 048
     Dates: start: 20100806, end: 20100809
  5. CANDESARTAN [Concomitant]
     Route: 048
  6. CIMETIDINE [Concomitant]
     Route: 048
     Dates: start: 20100802
  7. FUROSEMIDE [Concomitant]
     Route: 048
  8. ASPIRIN [Concomitant]
     Route: 048
     Dates: start: 20010213
  9. NIFEDIPINE [Concomitant]
     Route: 048
     Dates: start: 20100806
  10. GLIPIZIDE [Concomitant]
     Route: 048
     Dates: start: 20081118
  11. ACETAMINOPHEN [Concomitant]
     Route: 048
     Dates: start: 20080721
  12. ZOCOR [Suspect]
     Route: 065
  13. VITAMINS (UNSPECIFIED) [Concomitant]
     Route: 048
  14. RANITIDINE [Concomitant]
     Route: 048
  15. HYDROXOCOBALAMIN [Concomitant]
     Route: 065

REACTIONS (3)
  - LIVER FUNCTION TEST ABNORMAL [None]
  - DECREASED APPETITE [None]
  - NAUSEA [None]
